FAERS Safety Report 4333624-0 (Version None)
Quarter: 2004Q2

REPORT INFORMATION
  Report Type: 
  Country: None (occurrence: None)
  Receive Date: 20040402
  Receipt Date: 20040322
  Transmission Date: 20050107
  Serious: Yes (Death, Hospitalization, Other)
  Sender: FDA-Public Use
  Company Number: US045078

PATIENT
  Sex: Female

DRUGS (23)
  1. ETANERCEPT [Suspect]
     Indication: WEGENER'S GRANULOMATOSIS
     Dates: start: 20001201, end: 20030916
  2. CYCLOPHOSPHAMIDE [Suspect]
  3. AZATHIOPRINE [Suspect]
     Dosage: 50 MG, DAILY
  4. OMEPRAZOLE [Concomitant]
  5. INSULIN [Concomitant]
  6. BUMETANIDE [Concomitant]
  7. COPIDOGREL BISULFATE [Concomitant]
  8. POTASSIUM CHLORIDE [Concomitant]
  9. AZITHROMYCIN [Concomitant]
  10. METOPROLOL [Concomitant]
  11. ALBUTEROL SULFATE [Concomitant]
  12. IPRATROPIUM BROMIDE [Concomitant]
  13. OXYGEN [Concomitant]
  14. LISINOPRIL [Concomitant]
  15. DICLOFENAC SODIUM [Concomitant]
  16. CLOTRIMAZOLE [Concomitant]
  17. TYLOX [Concomitant]
  18. AMITRIPTYLINE HYDROCHLORIDE [Concomitant]
  19. ASPIRIN [Concomitant]
  20. SIMVASTATIN [Concomitant]
  21. TRIMETHOPRIM-SULFAMETHOXAZOLE [Concomitant]
  22. GLYCERYL TRINITRATE [Concomitant]
  23. ACETAMINOPHEN [Concomitant]

REACTIONS (12)
  - ANAEMIA [None]
  - BREAST CANCER [None]
  - BRONCHOSTENOSIS [None]
  - CARDIAC ARREST [None]
  - CONDITION AGGRAVATED [None]
  - HYPOTENSION [None]
  - LUNG CONSOLIDATION [None]
  - MOUTH ULCERATION [None]
  - OEDEMA PERIPHERAL [None]
  - ORAL PAIN [None]
  - TACHYCARDIA [None]
  - WEGENER'S GRANULOMATOSIS [None]
